FAERS Safety Report 9033534 (Version 2)
Quarter: 2013Q2

REPORT INFORMATION
  Report Type: Spontaneous
  Country: IE (occurrence: IE)
  Receive Date: 20130128
  Receipt Date: 20130402
  Transmission Date: 20140414
  Serious: Yes (Hospitalization, Other)
  Sender: FDA-Public Use
  Company Number: IE-ASTRAZENECA-2013SE05147

PATIENT
  Age: 8 Month
  Sex: Female

DRUGS (3)
  1. PALIVIZUMAB [Suspect]
     Indication: TRACHEAL FISTULA
     Route: 030
     Dates: start: 20121026
  2. ZANTAC [Concomitant]
  3. LOSEC [Concomitant]

REACTIONS (4)
  - Pneumonia [Unknown]
  - Vomiting [Recovered/Resolved]
  - Diarrhoea [Recovered/Resolved]
  - Pyrexia [Recovered/Resolved]
